APPROVED DRUG PRODUCT: CAMPRAL
Active Ingredient: ACAMPROSATE CALCIUM
Strength: 333MG **Federal Register determination that product was not discontinued or withdrawn for safety or effectiveness reasons**
Dosage Form/Route: TABLET, DELAYED RELEASE;ORAL
Application: N021431 | Product #001
Applicant: FOREST LABORATORIES INC
Approved: Jul 29, 2004 | RLD: Yes | RS: No | Type: DISCN